FAERS Safety Report 6752784-5 (Version None)
Quarter: 2010Q2

REPORT INFORMATION
  Report Type: 
  Country: None (occurrence: None)
  Receive Date: 20100602
  Receipt Date: 20100602
  Transmission Date: 20101027
  Serious: Yes (Hospitalization)
  Sender: FDA-Public Use
  Company Number: None

PATIENT
  Sex: Female
  Weight: 86.3 kg

DRUGS (1)
  1. ZIPSOR [Suspect]
     Indication: BREAST PAIN
     Dosage: 2 TABLETS ONCE PO
     Route: 048
     Dates: start: 20100601

REACTIONS (7)
  - COUGH [None]
  - DYSPNOEA [None]
  - HYPOAESTHESIA ORAL [None]
  - PRURITUS GENERALISED [None]
  - SWELLING [None]
  - URTICARIA [None]
  - VOMITING [None]
